FAERS Safety Report 8452514-5 (Version None)
Quarter: 2012Q2

REPORT INFORMATION
  Report Type: 
  Country: None (occurrence: None)
  Receive Date: 20120620
  Receipt Date: 20120618
  Transmission Date: 20120825
  Serious: Yes (Death)
  Sender: FDA-Public Use
  Company Number: PHHO2011DE16141

PATIENT
  Sex: Male

DRUGS (1)
  1. AFINITOR [Suspect]
     Indication: NEUROENDOCRINE TUMOUR
     Dosage: 10 MG, UNK
     Route: 048
     Dates: start: 20110819, end: 20110921

REACTIONS (3)
  - NEOPLASM PROGRESSION [None]
  - GENERAL PHYSICAL HEALTH DETERIORATION [None]
  - NEOPLASM MALIGNANT [None]
